FAERS Safety Report 24832432 (Version 1)
Quarter: 2025Q1

REPORT INFORMATION
  Report Type: Report from Study
  Country: US (occurrence: US)
  Receive Date: 20250110
  Receipt Date: 20250110
  Transmission Date: 20250409
  Serious: Yes (Other)
  Sender: GILEAD
  Company Number: US-GILEAD-2025-0699468

PATIENT
  Age: 58 Year
  Sex: Male

DRUGS (19)
  1. LENACAPAVIR [Suspect]
     Active Substance: LENACAPAVIR
     Indication: HIV infection
     Route: 058
  2. TRUVADA [Concomitant]
     Active Substance: EMTRICITABINE\TENOFOVIR DISOPROXIL FUMARATE
     Indication: HIV infection
     Route: 065
     Dates: start: 200809, end: 202303
  3. DARUNAVIR\RITONAVIR [Concomitant]
     Active Substance: DARUNAVIR\RITONAVIR
     Dates: start: 200809
  4. DARUNAVIR\RITONAVIR [Concomitant]
     Active Substance: DARUNAVIR\RITONAVIR
     Dates: start: 201410
  5. DARUNAVIR\RITONAVIR [Concomitant]
     Active Substance: DARUNAVIR\RITONAVIR
     Dates: start: 201510
  6. DARUNAVIR\RITONAVIR [Concomitant]
     Active Substance: DARUNAVIR\RITONAVIR
     Dates: start: 201608
  7. DARUNAVIR\RITONAVIR [Concomitant]
     Active Substance: DARUNAVIR\RITONAVIR
     Dates: start: 202001
  8. DARUNAVIR\RITONAVIR [Concomitant]
     Active Substance: DARUNAVIR\RITONAVIR
     Dates: start: 202108
  9. DARUNAVIR\RITONAVIR [Concomitant]
     Active Substance: DARUNAVIR\RITONAVIR
     Dates: start: 202206, end: 202303
  10. FOSTEMSAVIR [Concomitant]
     Active Substance: FOSTEMSAVIR
     Dates: start: 202001
  11. FOSTEMSAVIR [Concomitant]
     Active Substance: FOSTEMSAVIR
     Dates: start: 202108
  12. FOSTEMSAVIR [Concomitant]
     Active Substance: FOSTEMSAVIR
     Dates: start: 202202
  13. FOSTEMSAVIR [Concomitant]
     Active Substance: FOSTEMSAVIR
     Dates: start: 202206, end: 202303
  14. IBALIZUMAB [Concomitant]
     Active Substance: IBALIZUMAB
     Dates: start: 202001
  15. IBALIZUMAB [Concomitant]
     Active Substance: IBALIZUMAB
     Dates: start: 202108
  16. IBALIZUMAB [Concomitant]
     Active Substance: IBALIZUMAB
     Dates: start: 202202
  17. IBALIZUMAB [Concomitant]
     Active Substance: IBALIZUMAB
     Dates: start: 202206, end: 202303
  18. AZITHROMYCIN [Concomitant]
     Active Substance: AZITHROMYCIN
     Indication: Prophylaxis
  19. SULFAMETHOXAZOLE\TRIMETHOPRIM [Concomitant]
     Active Substance: SULFAMETHOXAZOLE\TRIMETHOPRIM
     Indication: Prophylaxis

REACTIONS (1)
  - Immune reconstitution inflammatory syndrome associated Kaposi^s sarcoma [Recovering/Resolving]
